FAERS Safety Report 6278396-8 (Version None)
Quarter: 2009Q3

REPORT INFORMATION
  Report Type: 
  Country: None (occurrence: None)
  Receive Date: 20090720
  Receipt Date: 20090720
  Transmission Date: 20100115
  Serious: Yes (Life-Threatening, Hospitalization)
  Sender: FDA-Public Use
  Company Number: None

PATIENT
  Age: 41 Year
  Sex: Male
  Weight: 77.1115 kg

DRUGS (1)
  1. ZYRTEC [Suspect]
     Indication: SNEEZING
     Dosage: ONE TABLET 24HRS. PO
     Route: 048
     Dates: start: 20090704, end: 20090715

REACTIONS (3)
  - ANAPHYLACTIC SHOCK [None]
  - ASPIRATION [None]
  - PANIC REACTION [None]
